APPROVED DRUG PRODUCT: PREDSULFAIR
Active Ingredient: PREDNISOLONE ACETATE; SULFACETAMIDE SODIUM
Strength: 0.5%;10%
Dosage Form/Route: SUSPENSION/DROPS;OPHTHALMIC
Application: A088007 | Product #001
Applicant: PHARMAFAIR INC
Approved: Apr 19, 1983 | RLD: No | RS: No | Type: DISCN